FAERS Safety Report 19025627 (Version 1)
Quarter: 2021Q1

REPORT INFORMATION
  Report Type: Spontaneous
  Country: FR (occurrence: FR)
  Receive Date: 20210318
  Receipt Date: 20210318
  Transmission Date: 20210420
  Serious: Yes (Life-Threatening, Hospitalization)
  Sender: FDA-Public Use
  Company Number: FR-MYLANLABS-2021M1015981

PATIENT
  Age: 17 Year
  Sex: Male

DRUGS (3)
  1. LOXAPINE. [Suspect]
     Active Substance: LOXAPINE
     Dosage: 25 MILLIGRAM ORAL RELAY AT H24
     Route: 048
  2. RISPERIDONE. [Suspect]
     Active Substance: RISPERIDONE
     Indication: BIPOLAR I DISORDER
     Dosage: 0.25 MILLIGRAM SINGLE DOSE
     Route: 065
  3. LOXAPINE. [Suspect]
     Active Substance: LOXAPINE
     Indication: BIPOLAR I DISORDER
     Dosage: 50 MILLIGRAM 50MG IN 2DOSES AT H0 AND H12
     Route: 030

REACTIONS (7)
  - Respiratory distress [Unknown]
  - Acute pulmonary oedema [Unknown]
  - Inflammation [Unknown]
  - Neuroleptic malignant syndrome [Unknown]
  - Rhabdomyolysis [Unknown]
  - Hypoxia [Unknown]
  - Hypothyroidism [Unknown]
